FAERS Safety Report 24783782 (Version 2)
Quarter: 2025Q3

REPORT INFORMATION
  Report Type: Report from Study
  Country: TW (occurrence: TW)
  Receive Date: 20241227
  Receipt Date: 20250803
  Transmission Date: 20251021
  Serious: Yes (Death, Other)
  Sender: ALEXION PHARMACEUTICALS
  Company Number: TW-AstraZeneca-CH-00774512A

PATIENT

DRUGS (1)
  1. OSIMERTINIB [Suspect]
     Active Substance: OSIMERTINIB
     Indication: Product used for unknown indication
     Dosage: 80 MILLIGRAM, QD
     Dates: start: 20230606

REACTIONS (1)
  - Death [Fatal]
